FAERS Safety Report 13953964 (Version 2)
Quarter: 2018Q3

REPORT INFORMATION
  Report Type: Spontaneous
  Country: US (occurrence: US)
  Receive Date: 20170911
  Receipt Date: 20180820
  Transmission Date: 20181010
  Serious: No
  Sender: FDA-Public Use
  Company Number: US-TEVA-789875ACC

PATIENT
  Sex: Female

DRUGS (1)
  1. VENLAFAXINE [Suspect]
     Active Substance: VENLAFAXINE HYDROCHLORIDE
     Indication: PANIC ATTACK

REACTIONS (10)
  - Emotional poverty [Unknown]
  - Depressed mood [Unknown]
  - Panic attack [Unknown]
  - Fatigue [Not Recovered/Not Resolved]
  - Anxiety [Unknown]
  - Alopecia [Not Recovered/Not Resolved]
  - Hypersomnia [Unknown]
  - Amnesia [Unknown]
  - Aphasia [Unknown]
  - Apathy [Unknown]

NARRATIVE: CASE EVENT DATE: 201706
